FAERS Safety Report 24556971 (Version 11)
Quarter: 2025Q4

REPORT INFORMATION
  Report Type: Report from Study
  Country: EU (occurrence: EU)
  Receive Date: 20241028
  Receipt Date: 20251223
  Transmission Date: 20260117
  Serious: Yes (Hospitalization, Other)
  Sender: TAKEDA
  Company Number: EU-TAKEDA-2024TUS107298

PATIENT
  Age: 11 Year
  Sex: Female

DRUGS (12)
  1. TEDUGLUTIDE [Suspect]
     Active Substance: TEDUGLUTIDE
     Indication: Short-bowel syndrome
     Dosage: 0.8 MILLIGRAM, QD
     Dates: start: 20180525, end: 20210602
  2. TEDUGLUTIDE [Suspect]
     Active Substance: TEDUGLUTIDE
     Dosage: 1 MILLIGRAM, QD
     Dates: start: 20221102, end: 20250122
  3. TEDUGLUTIDE [Suspect]
     Active Substance: TEDUGLUTIDE
     Dosage: 1.2 MILLIGRAM, QD
     Dates: start: 20250122, end: 20250210
  4. TEDUGLUTIDE [Suspect]
     Active Substance: TEDUGLUTIDE
     Dosage: 1.2 MILLIGRAM, QD
     Dates: start: 20250218, end: 20250409
  5. TEDUGLUTIDE [Suspect]
     Active Substance: TEDUGLUTIDE
     Dosage: 1.2 MILLIGRAM, QD
     Dates: start: 202506
  6. TEICOPLANIN [Suspect]
     Active Substance: TEICOPLANIN
     Indication: Product used for unknown indication
     Dosage: UNK
  7. RIFAXIMIN [Concomitant]
     Active Substance: RIFAXIMIN
     Indication: Dysbiosis
     Dosage: 100 MILLIGRAM
  8. SULFAMETHOXAZOLE\TRIMETHOPRIM [Concomitant]
     Active Substance: SULFAMETHOXAZOLE\TRIMETHOPRIM
     Indication: Gastrointestinal disorder prophylaxis
     Dosage: UNK
  9. URSODIOL [Concomitant]
     Active Substance: URSODIOL
     Dosage: 150 MILLIGRAM, BID
     Dates: start: 20200831
  10. PRODEFEN [Concomitant]
     Indication: Dysbiosis
     Dosage: UNK
  11. PRODEFEN [Concomitant]
     Indication: Prophylaxis
  12. HUMATIN [Concomitant]
     Active Substance: PAROMOMYCIN SULFATE
     Indication: Prophylaxis
     Dosage: 250 MILLIGRAM

REACTIONS (16)
  - Gastrointestinal haemorrhage [Recovered/Resolved]
  - Hypokalaemia [Recovered/Resolved]
  - Leukopenia [Recovered/Resolved]
  - Drug hypersensitivity [Recovered/Resolved]
  - Neutropenia [Recovered/Resolved]
  - Catheter site inflammation [Recovered/Resolved]
  - Colitis [Not Recovered/Not Resolved]
  - Ulcerative duodenitis [Not Recovered/Not Resolved]
  - Intestinal obstruction [Recovered/Resolved]
  - Abdominal pain [Recovered/Resolved]
  - Hyponatraemia [Recovered/Resolved]
  - Anaemia [Not Recovered/Not Resolved]
  - Iron deficiency [Recovered/Resolved]
  - Ear infection [Recovered/Resolved]
  - Electrolyte imbalance [Not Recovered/Not Resolved]
  - Abdominal lymphadenopathy [Not Recovered/Not Resolved]

NARRATIVE: CASE EVENT DATE: 20241009
